FAERS Safety Report 7159411-6 (Version None)
Quarter: 2010Q4

REPORT INFORMATION
  Report Type: 
  Country: None (occurrence: None)
  Receive Date: 20101214
  Receipt Date: 20100831
  Transmission Date: 20110411
  Serious: No
  Sender: FDA-Public Use
  Company Number: US-ASTRAZENECA-2010SE41084

PATIENT
  Age: 75 Year
  Sex: Female
  Weight: 78 kg

DRUGS (5)
  1. CRESTOR [Suspect]
     Route: 048
     Dates: start: 20100401
  2. ATENOLOL HCT [Concomitant]
  3. DIOVAN [Concomitant]
  4. FISH OIL [Concomitant]
  5. METAMUCIL-2 [Concomitant]

REACTIONS (2)
  - GAIT DISTURBANCE [None]
  - MUSCULAR WEAKNESS [None]
